FAERS Safety Report 13986248 (Version 4)
Quarter: 2017Q4

REPORT INFORMATION
  Report Type: Spontaneous
  Country: US (occurrence: US)
  Receive Date: 20170919
  Receipt Date: 20171121
  Transmission Date: 20180321
  Serious: No
  Sender: FDA-Public Use
  Company Number: US-VERTEX PHARMACEUTICALS-2017-005088

PATIENT
  Age: 11 Year
  Sex: Male
  Weight: 49 kg

DRUGS (11)
  1. ORKAMBI [Suspect]
     Active Substance: IVACAFTOR\LUMACAFTOR
     Indication: CYSTIC FIBROSIS
     Dosage: 2 DOSAGE FORM (100/125 MG EACH), BID
     Route: 048
     Dates: start: 20170330
  2. PEDIA-LAX (MAGNESIUM HYDROXIDE) [Concomitant]
     Active Substance: MAGNESIUM HYDROXIDE
     Dosage: 2 GUMMIES, QD
     Route: 048
  3. FLONASE                            /00908302/ [Concomitant]
     Active Substance: MOMETASONE FUROATE
     Indication: HYPERSENSITIVITY
     Dosage: 1 SPRAY EACH NOSTRIL 1-2 DAILY
     Route: 045
  4. SODIUM CHLORIDE. [Concomitant]
     Active Substance: SODIUM CHLORIDE
     Dosage: ONE VIAL BY NEBULIZER TWICE DAILY
     Route: 055
  5. CREON [Concomitant]
     Active Substance: PANCRELIPASE AMYLASE\PANCRELIPASE LIPASE\PANCRELIPASE PROTEASE
     Dosage: 4 CAP. BEFOE MEAL + 2 CAP. BEFORE SNACKS
     Route: 048
  6. RANITIDINE HCL [Concomitant]
     Active Substance: RANITIDINE HYDROCHLORIDE
     Dosage: 150 MG, BID
  7. CHOLECALCIFEROL [Concomitant]
     Active Substance: CHOLECALCIFEROL
     Dosage: 4 DOSAGE FORM, BID. SHOULD BE CHEWED AND TAKEN WITH A MEAL
     Route: 048
  8. CHILDRENS PROBIOTIC CHEW                          /06395501/ [Concomitant]
     Dosage: 1 DOSAGE FORM, QD
     Route: 048
  9. MIRALAX [Concomitant]
     Active Substance: POLYETHYLENE GLYCOL 3350
     Dosage: 17 GRAMS MIXED WITH LIQUID
     Route: 048
  10. MVW COMPLETE [Concomitant]
     Dosage: 2 DOSAGE FORM, QD
     Route: 048
  11. PULMOZYME [Concomitant]
     Active Substance: DORNASE ALFA
     Route: 055

REACTIONS (4)
  - Steatorrhoea [Recovering/Resolving]
  - Constipation [Recovering/Resolving]
  - Abnormal faeces [Recovering/Resolving]
  - Flatulence [Recovering/Resolving]

NARRATIVE: CASE EVENT DATE: 201709
